FAERS Safety Report 16642477 (Version 1)
Quarter: 2019Q3

REPORT INFORMATION
  Report Type: Spontaneous
  Country: US (occurrence: US)
  Receive Date: 20190614
  Receipt Date: 20190614
  Transmission Date: 20191004
  Serious: Yes (Other)
  Sender: FDA-Public Use
  Company Number: None

PATIENT
  Age: 33 Year
  Sex: Male

DRUGS (1)
  1. NEW U LIFE SOMADERM HGH GEL [Suspect]
     Active Substance: HOMEOPATHICS
     Dates: start: 201810, end: 20190528

REACTIONS (4)
  - Weight increased [None]
  - Goitre [None]
  - Dysphagia [None]
  - Feeling cold [None]
